FAERS Safety Report 7460435-X (Version None)
Quarter: 2011Q2

REPORT INFORMATION
  Report Type: 
  Country: None (occurrence: None)
  Receive Date: 20110505
  Receipt Date: 20110427
  Transmission Date: 20111010
  Serious: Yes (Death, Disabling)
  Sender: FDA-Public Use
  Company Number: B0716454A

PATIENT
  Sex: Male
  Weight: 20.2 kg

DRUGS (8)
  1. ALKERAN [Suspect]
     Indication: STEM CELL TRANSPLANT
     Dosage: 50MGM2 PER DAY
     Route: 042
     Dates: start: 20050923, end: 20050924
  2. THIOTEPA [Suspect]
     Dosage: 200MGM2 PER DAY
     Dates: start: 20050930, end: 20051001
  3. GRAN [Concomitant]
     Dates: start: 20051006, end: 20051017
  4. KYTRIL [Concomitant]
     Dosage: 2MG PER DAY
     Dates: start: 20050923, end: 20050925
  5. KYTRIL [Concomitant]
     Dosage: 6MG PER DAY
     Dates: start: 20050930, end: 20051002
  6. THIOTEPA [Suspect]
     Indication: STEM CELL TRANSPLANT
     Dosage: 150MGM2 PER DAY
     Dates: start: 20050923, end: 20050924
  7. ALKERAN [Suspect]
     Dosage: 50MGM2 PER DAY
     Route: 042
     Dates: start: 20050930, end: 20051001
  8. SOLU-CORTEF [Concomitant]
     Dosage: 100MG PER DAY
     Dates: start: 20050929, end: 20051020

REACTIONS (5)
  - C-REACTIVE PROTEIN INCREASED [None]
  - HEPATOBLASTOMA [None]
  - CEREBRAL HAEMORRHAGE [None]
  - SEPSIS [None]
  - DIABETES INSIPIDUS [None]
